FAERS Safety Report 5673451-5 (Version None)
Quarter: 2008Q2

REPORT INFORMATION
  Report Type: 
  Country: None (occurrence: None)
  Receive Date: 20080219
  Receipt Date: 20071024
  Transmission Date: 20081010
  Serious: No
  Sender: FDA-Public Use
  Company Number: TPA2007A02177

PATIENT
  Age: 58 Year
  Sex: Female
  Weight: 79.3795 kg

DRUGS (3)
  1. ROZEREM [Suspect]
     Indication: CIRCADIAN RHYTHM SLEEP DISORDER
     Dosage: 8 MG, HS, PER ORAL
     Route: 048
     Dates: start: 20071015
  2. ROZEREM [Suspect]
     Indication: POOR QUALITY SLEEP
     Dosage: 8 MG, HS, PER ORAL
     Route: 048
     Dates: start: 20071015
  3. UNKNOWN THYROID MEDICATION(ALL OTHER THERAPEUTIC PRODUCTS) [Concomitant]

REACTIONS (3)
  - FATIGUE [None]
  - MIDDLE INSOMNIA [None]
  - POOR QUALITY SLEEP [None]
